FAERS Safety Report 11417306 (Version 1)
Quarter: 2015Q3

REPORT INFORMATION
  Report Type: Spontaneous
  Country: US (occurrence: US)
  Receive Date: 20150825
  Receipt Date: 20150825
  Transmission Date: 20151125
  Serious: No
  Sender: FDA-Public Use
  Company Number: US-PFIZER INC-2015280064

PATIENT
  Age: 80 Year
  Sex: Male
  Weight: 86 kg

DRUGS (1)
  1. VIAGRA [Suspect]
     Active Substance: SILDENAFIL CITRATE
     Indication: ERECTILE DYSFUNCTION
     Dosage: 100 MG, AS NEEDED
     Route: 048
     Dates: start: 20150814, end: 201508

REACTIONS (7)
  - Poor quality sleep [Unknown]
  - Neck pain [Recovering/Resolving]
  - Headache [Unknown]
  - Dizziness postural [Recovering/Resolving]
  - Ear pain [Recovering/Resolving]
  - Nasal congestion [Recovered/Resolved]
  - Musculoskeletal stiffness [Recovering/Resolving]

NARRATIVE: CASE EVENT DATE: 20150815
